FAERS Safety Report 14356274 (Version 1)
Quarter: 2018Q1

REPORT INFORMATION
  Report Type: Spontaneous
  Country: US (occurrence: US)
  Receive Date: 20180105
  Receipt Date: 20180105
  Transmission Date: 20180509
  Serious: No
  Sender: FDA-Public Use
  Company Number: US-ALLERGAN-1755990US

PATIENT
  Age: 28 Year
  Sex: Female

DRUGS (2)
  1. KYBELLA [Suspect]
     Active Substance: DEOXYCHOLIC ACID
     Indication: FAT TISSUE INCREASED
     Dosage: 4 ML SUBMENTAL AREA 2 CM BELOW JAWBONE USING GRID
     Route: 058
     Dates: start: 20170922, end: 20170922
  2. KYBELLA [Suspect]
     Active Substance: DEOXYCHOLIC ACID
     Dosage: UNK
     Route: 058
     Dates: start: 20170711, end: 20170711

REACTIONS (1)
  - Facial paresis [Not Recovered/Not Resolved]

NARRATIVE: CASE EVENT DATE: 20170923
